FAERS Safety Report 16990052 (Version 1)
Quarter: 2019Q4

REPORT INFORMATION
  Report Type: Spontaneous
  Country: JP (occurrence: JP)
  Receive Date: 20191104
  Receipt Date: 20191104
  Transmission Date: 20200122
  Serious: Yes (Other)
  Sender: FDA-Public Use
  Company Number: JP-VISTAPHARM, INC.-VER201910-001192

PATIENT
  Sex: Female

DRUGS (3)
  1. PERAMPANEL [Concomitant]
     Active Substance: PERAMPANEL
     Indication: LISSENCEPHALY
     Dosage: 0.04 MG/KG/DAY
  2. PHENOBARBITAL. [Suspect]
     Active Substance: PHENOBARBITAL
     Indication: SEIZURE
     Dosage: UNKNOWN
  3. VALPROIC ACID. [Suspect]
     Active Substance: VALPROIC ACID
     Indication: SEIZURE
     Dosage: UNKNOWN

REACTIONS (1)
  - Respiratory failure [Unknown]
